FAERS Safety Report 8589656-X (Version None)
Quarter: 2012Q3

REPORT INFORMATION
  Report Type: 
  Country: None (occurrence: None)
  Receive Date: 20120813
  Receipt Date: 20120803
  Transmission Date: 20120928
  Serious: Yes (Hospitalization, Other)
  Sender: FDA-Public Use
  Company Number: BR-ASTRAZENECA-2012SE55356

PATIENT
  Age: 23 Year
  Sex: Male
  Weight: 82 kg

DRUGS (2)
  1. SYMBICORT [Suspect]
     Dosage: PRN, DURING WINTER
     Route: 055
  2. NEXIUM [Suspect]
     Dosage: DAILY
     Route: 048
     Dates: start: 20100101

REACTIONS (1)
  - MYOCARDIAL INFARCTION [None]
